FAERS Safety Report 5930327-3 (Version None)
Quarter: 2008Q4

REPORT INFORMATION
  Report Type: 
  Country: None (occurrence: None)
  Receive Date: 20081024
  Receipt Date: 20081017
  Transmission Date: 20090506
  Serious: Yes (Hospitalization)
  Sender: FDA-Public Use
  Company Number: JP-GENENTECH-270050

PATIENT
  Age: 69 Year
  Sex: Male

DRUGS (2)
  1. RITUXAN [Suspect]
     Indication: EXTRANODAL MARGINAL ZONE B-CELL LYMPHOMA (MALT TYPE)
     Route: 065
  2. CLADRIBINE [Concomitant]
     Indication: EXTRANODAL MARGINAL ZONE B-CELL LYMPHOMA (MALT TYPE)

REACTIONS (1)
  - ADENOVIRAL HAEMORRHAGIC CYSTITIS [None]
